FAERS Safety Report 9858971 (Version 1)
Quarter: 2014Q1

REPORT INFORMATION
  Report Type: Spontaneous
  Country: KR (occurrence: KR)
  Receive Date: 20140131
  Receipt Date: 20140131
  Transmission Date: 20141002
  Serious: Yes (Other)
  Sender: FDA-Public Use
  Company Number: KR-009507513-1401KOR011050

PATIENT
  Sex: Female

DRUGS (4)
  1. MERCILON [Suspect]
     Dosage: UNK
     Route: 048
  2. VENITOL [Concomitant]
     Indication: VEIN DISORDER
     Dosage: UNK
     Route: 048
  3. [COMPOSITION UNSPECIFIED] [Concomitant]
     Indication: DIARRHOEA
     Dosage: UNK
  4. ANTIMICROBIAL (UNSPECIFIED) [Concomitant]
     Dosage: UNK

REACTIONS (2)
  - Surgery [Unknown]
  - Vaginal haemorrhage [Not Recovered/Not Resolved]
